FAERS Safety Report 8886933 (Version 3)
Quarter: 2012Q4

REPORT INFORMATION
  Report Type: 
  Country: JP (occurrence: JP)
  Receive Date: 20121105
  Receipt Date: 20121123
  Transmission Date: 20130627
  Serious: Yes (Other)
  Sender: FDA-Public Use
  Company Number: PHHY2012JP099678

PATIENT
  Sex: Female

DRUGS (2)
  1. ZOMETA [Suspect]
     Indication: METASTASES TO BONE
     Dosage: UNK UKN, UNK
     Route: 041
  2. AREDIA [Suspect]
     Indication: METASTASES TO BONE
     Dosage: UNK UKN, UNK
     Route: 041

REACTIONS (12)
  - Osteonecrosis of jaw [Recovering/Resolving]
  - Periodontitis [Unknown]
  - Pain in jaw [Unknown]
  - Gingival erythema [Unknown]
  - Gingival swelling [Unknown]
  - Gingival infection [Unknown]
  - Bone pain [Unknown]
  - Bone lesion [Unknown]
  - Exposed bone in jaw [Unknown]
  - Primary sequestrum [Unknown]
  - Osteitis [Unknown]
  - Metastases to bone [Unknown]
